FAERS Safety Report 8251724-X (Version None)
Quarter: 2012Q1

REPORT INFORMATION
  Report Type: 
  Country: None (occurrence: None)
  Receive Date: 20120321
  Receipt Date: 20110713
  Transmission Date: 20120608
  Serious: Yes (Other)
  Sender: FDA-Public Use
  Company Number: PHHY2011US63363

PATIENT
  Sex: Female

DRUGS (5)
  1. CLONDINE (CLONDINE) [Concomitant]
  2. METOPROLOL TARTRATE [Concomitant]
  3. VALTURNA [Suspect]
     Dosage: 1 DF, DAILY
  4. LISINOPRIL [Concomitant]
  5. DIURETICS (NO INGREDIENTS/SUBSTANCES) [Concomitant]

REACTIONS (1)
  - BLOOD PRESSURE INCREASED [None]
